FAERS Safety Report 5126831-0 (Version None)
Quarter: 2006Q4

REPORT INFORMATION
  Report Type: 
  Country: None (occurrence: None)
  Receive Date: 20061013
  Receipt Date: 20060929
  Transmission Date: 20070319
  Serious: Yes (Hospitalization)
  Sender: FDA-Public Use
  Company Number: PHBS2006FR15034

PATIENT
  Age: 72 Year
  Sex: Male

DRUGS (4)
  1. LOPRESSOR [Suspect]
     Dosage: 100 MG/DAY
     Route: 048
  2. DEPAKENE [Concomitant]
     Dosage: 750 MG/DAY
     Dates: start: 20010101, end: 20060819
  3. DEPAKENE [Concomitant]
     Dosage: 1 G/DAY
     Dates: start: 20060820, end: 20060825
  4. OMEPRAZOLE [Concomitant]
     Dosage: 20 MG/DAY

REACTIONS (5)
  - APHASIA [None]
  - CONFUSIONAL STATE [None]
  - ELECTROENCEPHALOGRAM ABNORMAL [None]
  - MEMORY IMPAIRMENT [None]
  - TRANSIENT ISCHAEMIC ATTACK [None]
